FAERS Safety Report 7555870-5 (Version None)
Quarter: 2011Q2

REPORT INFORMATION
  Report Type: 
  Country: None (occurrence: None)
  Receive Date: 20110618
  Receipt Date: 20110607
  Transmission Date: 20111010
  Serious: Yes (Death, Hospitalization, Other)
  Sender: FDA-Public Use
  Company Number: US-BAYER-200922401NA

PATIENT
  Age: 74 Year
  Sex: Male
  Weight: 93 kg

DRUGS (28)
  1. TRASYLOL [Suspect]
     Indication: CORONARY ARTERY BYPASS
     Dosage: 100 ML, UNK
     Route: 042
     Dates: start: 19991210, end: 19991210
  2. PANCURONIUM BROMIDE [Concomitant]
     Dosage: UNK
     Dates: start: 19991210
  3. CAPTOPRIL [Concomitant]
     Dosage: 25 MG, UNK
     Route: 048
  4. CARDURA [Concomitant]
     Dosage: 2 MG, UNK
     Route: 048
  5. PROTAMINE SULFATE [Concomitant]
     Indication: UNEVALUABLE EVENT
     Dosage: UNK
     Route: 042
     Dates: start: 19991210
  6. DEMEROL [Concomitant]
     Indication: PRODUCT USED FOR UNKNOWN INDICATION
     Dosage: 75-100 MG PRN
     Route: 030
     Dates: start: 19990505
  7. DECADRON [Concomitant]
     Dosage: UNK
     Dates: start: 19991210
  8. MIDAZOLAM HCL [Concomitant]
     Dosage: UNK
     Dates: start: 19991210
  9. PROPRANOLOL [Concomitant]
     Dosage: 20 MG, UNK
     Route: 048
  10. ULTRAM [Concomitant]
     Dosage: 50 MG, TID PRN
     Route: 048
  11. SUFENTANIL CITRATE [Concomitant]
     Dosage: UNK
     Dates: start: 19991210
  12. HEPARIN [Concomitant]
     Dosage: UNK
     Dates: start: 19991210
  13. SEPTRA DS [Concomitant]
     Dosage: 800/160 UNK, UNK
     Route: 048
     Dates: start: 19990326
  14. NORMOSOL [Concomitant]
     Indication: UNEVALUABLE EVENT
     Dosage: 2000 ML, UNK
     Route: 042
     Dates: start: 19991210
  15. PHENERGAN [Concomitant]
     Indication: PRODUCT USED FOR UNKNOWN INDICATION
     Dosage: 25 MG, PRN
     Dates: start: 19990505
  16. PIROXICAM [Concomitant]
     Dosage: 20 MG, UNK
     Route: 048
  17. DELTASONE [Concomitant]
     Dosage: 5 MG, UNK
     Route: 048
  18. VIAGRA [Concomitant]
     Dosage: 100 MG, UNK
     Dates: start: 19990204
  19. PAPAVERINE [Concomitant]
     Dosage: 90 MG, UNK
     Route: 042
     Dates: start: 19991210
  20. SODIUM CHLORIDE [Concomitant]
     Indication: UNEVALUABLE EVENT
     Dosage: 3000 ML, UNK
     Route: 042
     Dates: start: 19991210
  21. TORADOL [Concomitant]
     Indication: PRODUCT USED FOR UNKNOWN INDICATION
     Dosage: 30 MG, TID
     Route: 030
     Dates: start: 19990505
  22. PRIMACOR [Concomitant]
     Dosage: UNK
     Dates: start: 19991210
  23. EPINEPHRINE [Concomitant]
     Dosage: UNK
     Dates: start: 19991210
  24. ACETYLSALICYLIC ACID SRT [Concomitant]
     Dosage: UNK
     Route: 048
     Dates: start: 19991208
  25. SEPTRA DS [Concomitant]
     Dosage: 800/160 UNK, UNK
     Dates: start: 19990610
  26. VANCOMYCIN [Concomitant]
     Dosage: UNK
     Dates: start: 19991210
  27. LASIX [Concomitant]
     Dosage: 40 MG, UNK
     Route: 048
  28. ULTRAM [Concomitant]
     Indication: PRODUCT USED FOR UNKNOWN INDICATION
     Dosage: 50 MG, UNK
     Route: 048

REACTIONS (12)
  - DEATH [None]
  - ANXIETY [None]
  - UNEVALUABLE EVENT [None]
  - RENAL FAILURE [None]
  - STRESS [None]
  - FEAR [None]
  - RENAL IMPAIRMENT [None]
  - RENAL INJURY [None]
  - INJURY [None]
  - EMOTIONAL DISTRESS [None]
  - PAIN [None]
  - ANHEDONIA [None]
